FAERS Safety Report 25721671 (Version 1)
Quarter: 2025Q3

REPORT INFORMATION
  Report Type: Spontaneous
  Country: CL (occurrence: CL)
  Receive Date: 20250825
  Receipt Date: 20250825
  Transmission Date: 20251021
  Serious: Yes (Hospitalization)
  Sender: ROCHE
  Company Number: CL-ROCHE-10000354395

PATIENT

DRUGS (1)
  1. EMICIZUMAB [Suspect]
     Active Substance: EMICIZUMAB
     Indication: Haemophilia
     Dosage: DOSE AND FREQUENCY WERE NOT REPORTED
     Route: 065
     Dates: start: 2024

REACTIONS (5)
  - Malaise [Unknown]
  - Blood bilirubin unconjugated increased [Unknown]
  - Headache [Unknown]
  - Vomiting [Unknown]
  - Haemolysis [Recovered/Resolved]
